FAERS Safety Report 4532192-8 (Version None)
Quarter: 2004Q4

REPORT INFORMATION
  Report Type: 
  Country: None (occurrence: None)
  Receive Date: 20041217
  Receipt Date: 20041206
  Transmission Date: 20050328
  Serious: Yes (Other)
  Sender: FDA-Public Use
  Company Number: 2004104166

PATIENT
  Age: 36 Year
  Sex: Male

DRUGS (4)
  1. DIFLUCAN [Suspect]
     Indication: ENDOCARDITIS CANDIDA
     Dates: start: 20041024
  2. DIFLUCAN [Suspect]
     Indication: ILL-DEFINED DISORDER
     Dates: start: 20041024
  3. METHADONE HCL [Suspect]
     Indication: DRUG ABUSER
     Dosage: 120 MG (60 NMG, 2 IN 1 D), ORAL
     Route: 048
     Dates: start: 20041001
  4. VORICONAZOLE (VORICONAZOLE) [Concomitant]

REACTIONS (9)
  - AORTIC VALVE INCOMPETENCE [None]
  - CANDIDIASIS [None]
  - CEREBRAL ARTERY EMBOLISM [None]
  - CEREBROVASCULAR ACCIDENT [None]
  - CONDITION AGGRAVATED [None]
  - ELECTROCARDIOGRAM QT PROLONGED [None]
  - ENDOCARDITIS CANDIDA [None]
  - RENAL FAILURE [None]
  - SYSTEMIC CANDIDA [None]
